FAERS Safety Report 9422487 (Version 4)
Quarter: 2014Q1

REPORT INFORMATION
  Report Type: Spontaneous
  Country: US (occurrence: US)
  Receive Date: 20130726
  Receipt Date: 20140103
  Transmission Date: 20141002
  Serious: Yes (Death, Hospitalization)
  Sender: FDA-Public Use
  Company Number: US-INCYTE CORPORATION-2013IN001653

PATIENT
  Age: 70 Year
  Sex: Female
  Weight: 81.63 kg

DRUGS (3)
  1. JAKAFI [Suspect]
     Indication: MYELOPROLIFERATIVE DISORDER
     Dosage: 20 MG, BID
     Route: 048
     Dates: start: 20120308
  2. JAKAFI [Suspect]
     Dosage: DAILY
  3. COUMADIN /00014802/ [Suspect]
     Indication: ATRIAL FIBRILLATION
     Dosage: UNK

REACTIONS (3)
  - Rectal haemorrhage [Fatal]
  - Incisional hernia [Unknown]
  - Cholecystitis acute [Unknown]
